FAERS Safety Report 5970461-5 (Version None)
Quarter: 2008Q4

REPORT INFORMATION
  Report Type: 
  Country: None (occurrence: None)
  Receive Date: 20081126
  Receipt Date: 20081027
  Transmission Date: 20090506
  Serious: No
  Sender: FDA-Public Use
  Company Number: US-ABBOTT-08P-163-0483985-00

PATIENT
  Sex: Male

DRUGS (4)
  1. SIMCOR [Suspect]
     Indication: HIGH DENSITY LIPOPROTEIN DECREASED
     Dosage: 2000/40 QHS
     Dates: start: 20081011
  2. ACETYLSALICYLIC ACID SRT [Concomitant]
     Indication: DRUG USE FOR UNKNOWN INDICATION
  3. TOLTERODINE [Concomitant]
     Indication: DRUG USE FOR UNKNOWN INDICATION
  4. VIGRAN [Concomitant]
     Indication: DRUG USE FOR UNKNOWN INDICATION

REACTIONS (6)
  - DIZZINESS [None]
  - FLUSHING [None]
  - ILL-DEFINED DISORDER [None]
  - MUSCULAR WEAKNESS [None]
  - NAUSEA [None]
  - SENSATION OF HEAVINESS [None]
